FAERS Safety Report 10259720 (Version 2)
Quarter: 2014Q3

REPORT INFORMATION
  Report Type: Report from Study
  Country: US (occurrence: US)
  Receive Date: 20140625
  Receipt Date: 20140723
  Transmission Date: 20150326
  Serious: Yes (Other)
  Sender: FDA-Public Use
  Company Number: US-BAYER-2014-091672

PATIENT
  Age: 49 Year
  Sex: Female

DRUGS (2)
  1. BETASERON [Suspect]
     Active Substance: INTERFERON BETA-1B
     Indication: MULTIPLE SCLEROSIS
     Dosage: 8 MIU, QOD
     Route: 058
     Dates: start: 20060104
  2. BETASERON [Suspect]
     Active Substance: INTERFERON BETA-1B
     Indication: MULTIPLE SCLEROSIS
     Dosage: UNK

REACTIONS (7)
  - Weight increased [Not Recovered/Not Resolved]
  - Drug dose omission [None]
  - Hypersomnia [Not Recovered/Not Resolved]
  - Gallbladder disorder [Not Recovered/Not Resolved]
  - Cholelithiasis [None]
  - Diarrhoea [Not Recovered/Not Resolved]
  - Abdominal tenderness [Not Recovered/Not Resolved]

NARRATIVE: CASE EVENT DATE: 20140416
